FAERS Safety Report 6529913-1 (Version None)
Quarter: 2010Q1

REPORT INFORMATION
  Report Type: 
  Country: None (occurrence: None)
  Receive Date: 20100107
  Receipt Date: 20100104
  Transmission Date: 20100710
  Serious: Yes (Hospitalization)
  Sender: FDA-Public Use
  Company Number: B0621606A

PATIENT
  Sex: Female
  Weight: 97 kg

DRUGS (14)
  1. ARIXTRA [Suspect]
     Indication: DRUG USE FOR UNKNOWN INDICATION
     Dosage: 5MG PER DAY
     Route: 058
     Dates: start: 20091013, end: 20091019
  2. PREVISCAN [Concomitant]
     Indication: ATRIAL FIBRILLATION
     Route: 065
  3. DIFFU K [Concomitant]
     Indication: DRUG USE FOR UNKNOWN INDICATION
     Route: 065
  4. LASILIX [Concomitant]
     Indication: DRUG USE FOR UNKNOWN INDICATION
     Route: 065
  5. METFORMIN [Concomitant]
     Route: 065
     Dates: end: 20091009
  6. BISOPROLOL [Concomitant]
     Route: 065
  7. GLUCOR [Concomitant]
     Route: 065
     Dates: end: 20091009
  8. PRAZOSIN HCL [Concomitant]
     Route: 065
  9. LERCANIDIPINE [Concomitant]
     Route: 065
  10. SPIRONOLACTONE [Concomitant]
     Route: 065
     Dates: end: 20091009
  11. APROVEL [Concomitant]
     Route: 065
     Dates: end: 20091009
  12. DAFALGAN [Concomitant]
     Indication: DRUG USE FOR UNKNOWN INDICATION
     Route: 065
  13. RILMENIDINE [Concomitant]
     Route: 065
     Dates: start: 20091009
  14. NOVONORM [Concomitant]
     Route: 065
     Dates: start: 20091009

REACTIONS (5)
  - ABDOMINAL WALL HAEMATOMA [None]
  - HAEMATOMA [None]
  - INJECTION SITE HAEMATOMA [None]
  - OFF LABEL USE [None]
  - RED BLOOD CELL COUNT DECREASED [None]
